FAERS Safety Report 6934534-2 (Version None)
Quarter: 2010Q3

REPORT INFORMATION
  Report Type: 
  Country: None (occurrence: None)
  Receive Date: 20100820
  Receipt Date: 20100812
  Transmission Date: 20110219
  Serious: Yes (Hospitalization)
  Sender: FDA-Public Use
  Company Number: US-AMGEN-KDL426919

PATIENT
  Sex: Female
  Weight: 62.7 kg

DRUGS (18)
  1. ENBREL [Suspect]
     Indication: RHEUMATOID ARTHRITIS
     Route: 058
     Dates: start: 20090301
  2. ZYRTEC [Concomitant]
  3. ASCORBIC ACID [Concomitant]
  4. VITAMIN B-12 [Concomitant]
     Route: 060
  5. VAGIFEM [Concomitant]
     Route: 067
  6. TRAMADOL HYDROCHLORIDE [Concomitant]
     Route: 048
  7. SPIRIVA [Concomitant]
     Route: 055
  8. SINGULAIR [Concomitant]
     Route: 048
  9. RESTORIL [Concomitant]
     Route: 048
  10. PREDNISONE [Concomitant]
     Route: 048
  11. MULTI-VITAMINS [Concomitant]
     Route: 048
  12. LEVOXYL [Concomitant]
     Route: 048
  13. FOLIC ACID [Concomitant]
     Route: 048
  14. FISH OIL [Concomitant]
     Route: 048
  15. CALCIUM [Concomitant]
  16. AMLODIPINE [Concomitant]
  17. OLMESARTAN MEDOXOMIL [Concomitant]
     Route: 047
  18. MORPHINE [Concomitant]
     Route: 048

REACTIONS (4)
  - ARTERIOVENOUS MALFORMATION [None]
  - GASTRITIS EROSIVE [None]
  - HEPATITIS VIRAL [None]
  - RHEUMATOID ARTHRITIS [None]
